FAERS Safety Report 10913379 (Version 1)
Quarter: 2015Q1

REPORT INFORMATION
  Report Type: Spontaneous
  Country: US (occurrence: None)
  Receive Date: 20150310
  Receipt Date: 20150310
  Transmission Date: 20150721
  Serious: No
  Sender: FDA-Public Use
  Company Number: None

PATIENT
  Age: 47 Year
  Sex: Female

DRUGS (9)
  1. GABAPENTIN. [Concomitant]
     Active Substance: GABAPENTIN
  2. FLONASE [Concomitant]
     Active Substance: FLUTICASONE PROPIONATE
  3. SERTRALINE [Concomitant]
     Active Substance: SERTRALINE HYDROCHLORIDE
  4. AMPYRA [Suspect]
     Active Substance: DALFAMPRIDINE
  5. BACLOFEN. [Concomitant]
     Active Substance: BACLOFEN
  6. RITUXAN [Concomitant]
     Active Substance: RITUXIMAB
  7. TRAZODONE [Concomitant]
     Active Substance: TRAZODONE HYDROCHLORIDE
  8. VITAMIN D [Concomitant]
     Active Substance: CHOLECALCIFEROL
  9. NYSTATIN SUSPENSION [Concomitant]
     Active Substance: NYSTATIN

REACTIONS (2)
  - Drug ineffective [None]
  - Therapy cessation [None]

NARRATIVE: CASE EVENT DATE: 20141125
